FAERS Safety Report 13884313 (Version 3)
Quarter: 2018Q2

REPORT INFORMATION
  Report Type: Spontaneous
  Country: US (occurrence: US)
  Receive Date: 20170821
  Receipt Date: 20180517
  Transmission Date: 20180711
  Serious: Yes (Hospitalization, Other)
  Sender: FDA-Public Use
  Company Number: US-TEVA-705855USA

PATIENT
  Age: 60 Year

DRUGS (31)
  1. ESTRADIOL VALERATE. [Suspect]
     Active Substance: ESTRADIOL VALERATE
     Route: 065
     Dates: start: 2014
  2. VESICARE [Suspect]
     Active Substance: SOLIFENACIN SUCCINATE
     Dosage: 10 MILLIGRAM DAILY;
     Route: 048
     Dates: start: 20140127
  3. TRIACET (TRIAMCINOLONE ACETONIDE) [Suspect]
     Active Substance: TRIAMCINOLONE ACETONIDE
     Route: 065
     Dates: start: 2014
  4. VESICARE [Suspect]
     Active Substance: SOLIFENACIN SUCCINATE
     Indication: INCONTINENCE
     Dosage: 5 MILLIGRAM DAILY;
     Route: 048
     Dates: start: 20080520, end: 20080714
  5. GENTEAL MILD [Concomitant]
     Active Substance: HYPROMELLOSE 2910 (4000 MPA.S)
  6. ACIPHEX [Concomitant]
     Active Substance: RABEPRAZOLE SODIUM
  7. EFFEXOR [Concomitant]
     Active Substance: VENLAFAXINE HYDROCHLORIDE
  8. TOPAMAX [Concomitant]
     Active Substance: TOPIRAMATE
  9. SYSTANE (HYPROMELLOSE 2910 (4000 MPA.S)) [Concomitant]
     Active Substance: HYPROMELLOSE 2910 (4000 MPA.S)
  10. FEXOFENADINE [Suspect]
     Active Substance: FEXOFENADINE\FEXOFENADINE HYDROCHLORIDE
     Route: 065
     Dates: start: 2014
  11. MEGA-RED [Suspect]
     Active Substance: DIETARY SUPPLEMENT
     Route: 065
     Dates: start: 2014
  12. RESTASIS [Concomitant]
     Active Substance: CYCLOSPORINE
  13. SYNTHROID [Concomitant]
     Active Substance: LEVOTHYROXINE SODIUM
  14. ASCORBIC ACID. [Concomitant]
     Active Substance: ASCORBIC ACID
  15. PANTOPRAZOLE [Suspect]
     Active Substance: PANTOPRAZOLE
     Route: 065
     Dates: start: 2014
  16. LOSARTAN. [Suspect]
     Active Substance: LOSARTAN
     Route: 065
     Dates: start: 2014
  17. VESICARE [Suspect]
     Active Substance: SOLIFENACIN SUCCINATE
     Dosage: 10 MILLIGRAM DAILY;
     Route: 048
     Dates: start: 20080717
  18. VESICARE [Suspect]
     Active Substance: SOLIFENACIN SUCCINATE
     Route: 065
     Dates: start: 2007
  19. CALCIUM CARBONATE. [Concomitant]
     Active Substance: CALCIUM CARBONATE
  20. MIGRALEVE [Concomitant]
     Active Substance: ACETAMINOPHEN\BUCLIZINE HYDROCHLORIDE\CODEINE
  21. LUTEIN [Concomitant]
     Active Substance: LUTEIN
  22. ASPIRIN. [Concomitant]
     Active Substance: ASPIRIN
  23. SPIRONOLACTONE. [Suspect]
     Active Substance: SPIRONOLACTONE
     Route: 065
     Dates: start: 2014
  24. FOLIC ACID. [Concomitant]
     Active Substance: FOLIC ACID
  25. BILBERRY [Concomitant]
     Active Substance: BILBERRY
  26. TORASEMIDE [Suspect]
     Active Substance: TORSEMIDE
     Route: 065
     Dates: start: 2014
  27. VENLAFAXINE [Suspect]
     Active Substance: VENLAFAXINE HYDROCHLORIDE
     Route: 065
     Dates: start: 2014
  28. HYDROCHLORZIDE [Concomitant]
     Active Substance: HYDROCHLOROTHIAZIDE
  29. VITAMIN B COMPLEX [Concomitant]
     Active Substance: CYANOCOBALAMIN\DEXPANTHENOL\NIACINAMIDE\PYRIDOXINE HYDROCHLORIDE\RIBOFLAVIN 5^-PHOSPHATE SODIUM\THIAMINE HYDROCHLORIDE\VITAMIN B COMPLEX
  30. VITAMIN C [Concomitant]
     Active Substance: ASCORBIC ACID
  31. FLAXSEED [Concomitant]
     Active Substance: FLAX SEED

REACTIONS (8)
  - Breast cancer stage IV [Recovered/Resolved]
  - Skin ulcer [Not Recovered/Not Resolved]
  - Renal impairment [Unknown]
  - Throat tightness [Unknown]
  - Urinary incontinence [Recovering/Resolving]
  - Hyperhidrosis [Not Recovered/Not Resolved]
  - Sunburn [Not Recovered/Not Resolved]
  - Hot flush [Not Recovered/Not Resolved]

NARRATIVE: CASE EVENT DATE: 200805
